FAERS Safety Report 9284365 (Version 1)
Quarter: 2013Q2

REPORT INFORMATION
  Report Type: Spontaneous
  Country: US (occurrence: US)
  Receive Date: 20130510
  Receipt Date: 20130510
  Transmission Date: 20140414
  Serious: No
  Sender: FDA-Public Use
  Company Number: US-ASTRAZENECA-2013SE26106

PATIENT
  Age: 35 Year
  Sex: Male
  Weight: 63.5 kg

DRUGS (2)
  1. SEROQUEL XR [Suspect]
     Route: 048
     Dates: start: 201304, end: 20130415
  2. SEROQUEL XR [Suspect]
     Dosage: 150 MG, CUT THE TABLET IN HALF AND TAKE IT ON MONDAY
     Route: 048
     Dates: start: 20130415

REACTIONS (3)
  - Anxiety [Unknown]
  - Dysarthria [Recovered/Resolved]
  - Intentional drug misuse [Unknown]
